FAERS Safety Report 11794430 (Version 1)
Quarter: 2015Q4

REPORT INFORMATION
  Report Type: Spontaneous
  Country: FR (occurrence: None)
  Receive Date: 20151202
  Receipt Date: 20151202
  Transmission Date: 20160305
  Serious: Yes (Other)
  Sender: FDA-Public Use
  Company Number: FR-MDT-ADR-2015-02263

PATIENT
  Age: 62 Year
  Sex: Female

DRUGS (1)
  1. BACLOFEN UNKNOWN [Suspect]
     Active Substance: BACLOFEN
     Indication: BULIMIA NERVOSA
     Dosage: 03 DF, QD

REACTIONS (5)
  - Confusional state [None]
  - Dizziness [None]
  - Somnolence [None]
  - Depression [None]
  - Vertigo [None]
